FAERS Safety Report 10082769 (Version 1)
Quarter: 2014Q2

REPORT INFORMATION
  Report Type: Spontaneous
  Country: US (occurrence: US)
  Receive Date: 20140416
  Receipt Date: 20140416
  Transmission Date: 20141212
  Serious: No
  Sender: FDA-Public Use
  Company Number: US-ALLERGAN-1311233US

PATIENT
  Age: 62 Year
  Sex: Female

DRUGS (5)
  1. ZYMAXID [Suspect]
     Indication: EYE INFECTION
     Dosage: 2 GTT, QID
     Route: 047
     Dates: start: 20130723, end: 20130724
  2. XIOPTAN [Concomitant]
     Indication: GLAUCOMA
     Dosage: 2 GTT, UNK
     Route: 047
  3. HORMONE REPLACEMENT THERAPY [Concomitant]
     Indication: PRODUCT USED FOR UNKNOWN INDICATION
  4. ARMOUR THYROID [Concomitant]
     Indication: PRODUCT USED FOR UNKNOWN INDICATION
  5. DECONGESTANT [Concomitant]
     Indication: HYPERSENSITIVITY

REACTIONS (1)
  - Intraocular pressure increased [Recovered/Resolved]
